FAERS Safety Report 8396830-4 (Version None)
Quarter: 2012Q2

REPORT INFORMATION
  Report Type: 
  Country: None (occurrence: None)
  Receive Date: 20120530
  Receipt Date: 20120524
  Transmission Date: 20120825
  Serious: Yes (Other)
  Sender: FDA-Public Use
  Company Number: FR-ABBOTT-12P-056-0939019-00

PATIENT
  Sex: Male

DRUGS (6)
  1. REYATAZ [Suspect]
     Indication: HIV INFECTION
     Route: 048
     Dates: start: 20080121
  2. TRUVADA [Concomitant]
     Indication: HIV INFECTION
  3. PENTOXIFYLLINE [Suspect]
     Dates: start: 20111219
  4. NORVIR [Suspect]
     Indication: HIV INFECTION
     Route: 048
     Dates: start: 20070924
  5. PENTOXIFYLLINE [Suspect]
     Dates: start: 20111207
  6. PENTOXIFYLLINE [Suspect]
     Indication: PULMONARY EMBOLISM
     Route: 048
     Dates: start: 20111201

REACTIONS (2)
  - INTERNATIONAL NORMALISED RATIO DECREASED [None]
  - PULMONARY EMBOLISM [None]
